FAERS Safety Report 5104500-0 (Version None)
Quarter: 2006Q3

REPORT INFORMATION
  Report Type: 
  Country: None (occurrence: None)
  Receive Date: 20060914
  Receipt Date: 20060601
  Transmission Date: 20061208
  Serious: Yes (Hospitalization)
  Sender: FDA-Public Use
  Company Number: PHEH2006US07180

PATIENT
  Age: 10 Year
  Sex: Male
  Weight: 34.3 kg

DRUGS (3)
  1. EXJADE [Suspect]
     Indication: BLOOD IRON INCREASED
     Dosage: 500 MG, QD
     Route: 048
     Dates: start: 20060327, end: 20060609
  2. FOLIC ACID [Concomitant]
     Indication: HAEMOLYTIC ANAEMIA
     Dosage: 1 MG, UNK
  3. PENICILLIN VK [Concomitant]
     Indication: SICKLE CELL ANAEMIA
     Dosage: 250 MG, BID
     Route: 048

REACTIONS (14)
  - ALANINE AMINOTRANSFERASE INCREASED [None]
  - ASPARTATE AMINOTRANSFERASE INCREASED [None]
  - CARDIOMYOPATHY [None]
  - CYTOLYTIC HEPATITIS [None]
  - DEHYDRATION [None]
  - LEUKOCYTOSIS [None]
  - LIVER FUNCTION TEST ABNORMAL [None]
  - LUNG CONSOLIDATION [None]
  - MALAISE [None]
  - PYREXIA [None]
  - RENAL DISORDER [None]
  - SPLEEN DISORDER [None]
  - ULTRASOUND ABDOMEN ABNORMAL [None]
  - WHITE BLOOD CELL COUNT INCREASED [None]
